FAERS Safety Report 15385756 (Version 1)
Quarter: 2018Q3

REPORT INFORMATION
  Report Type: Spontaneous
  Country: JP (occurrence: JP)
  Receive Date: 20180914
  Receipt Date: 20180914
  Transmission Date: 20181010
  Serious: Yes (Hospitalization)
  Sender: FDA-Public Use
  Company Number: JP-TEVA-2018-JP-954206

PATIENT
  Age: 53 Year
  Sex: Female

DRUGS (4)
  1. IMMUNOGLOBULIN [Concomitant]
     Indication: PNEUMONIA PNEUMOCOCCAL
     Route: 065
  2. MEROPENEM. [Suspect]
     Active Substance: MEROPENEM
     Indication: PNEUMONIA PNEUMOCOCCAL
     Route: 065
  3. HYDROCORTISONE. [Suspect]
     Active Substance: HYDROCORTISONE
     Indication: PNEUMONIA PNEUMOCOCCAL
     Dosage: SUBSEQUENTLY TAPERED TO 100 MG/DAY AND THEN 50 MG/DAY
     Route: 065
  4. AZITHROMYCIN ANHYDROUS. [Suspect]
     Active Substance: AZITHROMYCIN ANHYDROUS
     Indication: PNEUMONIA PNEUMOCOCCAL
     Route: 065

REACTIONS (4)
  - Fungal infection [Recovered/Resolved]
  - Peritonitis [Recovering/Resolving]
  - Mucormycosis [Recovered/Resolved]
  - Aspergillus infection [Recovered/Resolved]
